FAERS Safety Report 9687915 (Version 1)
Quarter: 2013Q4

REPORT INFORMATION
  Report Type: Spontaneous
  Country: US (occurrence: US)
  Receive Date: 20131114
  Receipt Date: 20131114
  Transmission Date: 20140711
  Serious: Yes (Hospitalization)
  Sender: FDA-Public Use
  Company Number: US-BAYER-2013-138073

PATIENT
  Age: 33 Year
  Sex: Female
  Weight: 97.51 kg

DRUGS (4)
  1. YAZ [Suspect]
     Indication: POLYCYSTIC OVARIES
  2. GIANVI [Suspect]
  3. LIDODERM [Concomitant]
  4. SPIRONOLACTONE [Concomitant]
     Dosage: 50 MG, UNK
     Route: 048

REACTIONS (1)
  - Pulmonary embolism [None]
